FAERS Safety Report 19026873 (Version 6)
Quarter: 2021Q3

REPORT INFORMATION
  Report Type: Report from Study
  Country: US (occurrence: US)
  Receive Date: 20210318
  Receipt Date: 20210923
  Transmission Date: 20211014
  Serious: Yes (Hospitalization)
  Sender: FDA-Public Use
  Company Number: NVSC2021US055760

PATIENT
  Sex: Female

DRUGS (1)
  1. ADAKVEO [Suspect]
     Active Substance: CRIZANLIZUMAB-TMCA
     Indication: SICKLE CELL DISEASE
     Dosage: QMO (SOLUTION), (INTO THE BLOODSTREAM VIA VEIN)
     Route: 042

REACTIONS (4)
  - Illness [Unknown]
  - Ill-defined disorder [Unknown]
  - Pain [Unknown]
  - Product dose omission issue [Unknown]
